FAERS Safety Report 8774893 (Version 6)
Quarter: 2013Q2

REPORT INFORMATION
  Report Type: Spontaneous
  Country: US (occurrence: US)
  Receive Date: 20120910
  Receipt Date: 20130430
  Transmission Date: 20140414
  Serious: Yes (Hospitalization, Other)
  Sender: FDA-Public Use
  Company Number: US-ROCHE-791024

PATIENT
  Age: 17 Year
  Sex: Female
  Weight: 38.59 kg

DRUGS (2)
  1. ACCUTANE [Suspect]
     Indication: ACNE
     Route: 065
     Dates: start: 199312, end: 199403
  2. ACCUTANE [Suspect]
     Route: 065
     Dates: start: 199811, end: 199902

REACTIONS (7)
  - Colitis ulcerative [Unknown]
  - Intestinal obstruction [Unknown]
  - Inflammatory bowel disease [Unknown]
  - Emotional distress [Unknown]
  - Depression [Unknown]
  - Dry skin [Unknown]
  - Cheilitis [Unknown]
